FAERS Safety Report 8457711-0 (Version None)
Quarter: 2012Q2

REPORT INFORMATION
  Report Type: 
  Country: None (occurrence: None)
  Receive Date: 20120618
  Receipt Date: 20120618
  Transmission Date: 20120825
  Serious: No
  Sender: FDA-Public Use
  Company Number: None

PATIENT
  Age: 45 Year
  Sex: Male
  Weight: 103.4201 kg

DRUGS (1)
  1. CYMBALTA [Suspect]
     Indication: MAJOR DEPRESSION
     Dosage: 30MG 4X A DAY PO
     Route: 048
     Dates: start: 20090501, end: 20120615

REACTIONS (14)
  - PAIN [None]
  - CONDITION AGGRAVATED [None]
  - ARTHRALGIA [None]
  - HYPERHIDROSIS [None]
  - MYALGIA [None]
  - TREMOR [None]
  - SOMNOLENCE [None]
  - IMPAIRED WORK ABILITY [None]
  - MENTAL IMPAIRMENT [None]
  - BACK PAIN [None]
  - FEELING ABNORMAL [None]
  - SEXUAL DYSFUNCTION [None]
  - FATIGUE [None]
  - INSOMNIA [None]
